FAERS Safety Report 4615688-X (Version None)
Quarter: 2005Q1

REPORT INFORMATION
  Report Type: 
  Country: None (occurrence: None)
  Receive Date: 20050317
  Receipt Date: 20050309
  Transmission Date: 20050727
  Serious: Yes (Death, Other)
  Sender: FDA-Public Use
  Company Number: 200421009BWH

PATIENT
  Age: 45 Year
  Sex: Female

DRUGS (1)
  1. TRASYLOL [Suspect]
     Dosage: 1 ML, ONCE, INTRAVENOUS
     Route: 042
     Dates: start: 20041101

REACTIONS (5)
  - ANAPHYLACTIC REACTION [None]
  - CARDIOMYOPATHY [None]
  - HYPOTENSION [None]
  - POST PROCEDURAL COMPLICATION [None]
  - PULMONARY OEDEMA [None]
